FAERS Safety Report 6128715-8 (Version None)
Quarter: 2009Q1

REPORT INFORMATION
  Report Type: 
  Country: None (occurrence: None)
  Receive Date: 20090323
  Receipt Date: 20090320
  Transmission Date: 20090719
  Serious: Yes (Other)
  Sender: FDA-Public Use
  Company Number: US-PFIZER INC-2008083105

PATIENT
  Sex: Female
  Weight: 60 kg

DRUGS (10)
  1. LIPITOR [Suspect]
     Indication: BLOOD CHOLESTEROL INCREASED
     Dosage: 20 MG, 1X/DAY
     Route: 048
  2. LIPITOR [Suspect]
     Indication: HYPERLIPIDAEMIA
     Dosage: 40 MG, 1X/DAY
     Dates: start: 20080730, end: 20080820
  3. ZETIA [Suspect]
     Indication: BLOOD CHOLESTEROL
     Dosage: UNK
     Dates: end: 20080101
  4. CLOZAPINE [Concomitant]
     Dosage: UNK
  5. NABUMETONE [Concomitant]
     Dosage: 750 MG, 2X/DAY
     Route: 048
  6. NABUMETONE [Concomitant]
     Route: 048
  7. ADVAIR HFA [Concomitant]
     Dosage: UNK
  8. ALBUTEROL [Concomitant]
     Dosage: 0.09 MG, UNK
     Route: 055
  9. CLORAZEPATE DIPOTASSIUM [Concomitant]
     Dosage: 15 MG, 1X/DAY
     Route: 048
  10. PROTONIX [Concomitant]
     Dosage: 40 MG, 1X/DAY
     Route: 048

REACTIONS (9)
  - BACK PAIN [None]
  - BLOOD CHOLESTEROL INCREASED [None]
  - INSOMNIA [None]
  - JOINT STIFFNESS [None]
  - MOBILITY DECREASED [None]
  - MUSCULAR WEAKNESS [None]
  - MYALGIA [None]
  - PAIN IN EXTREMITY [None]
  - SURGERY [None]
